FAERS Safety Report 22174691 (Version 1)
Quarter: 2023Q2

REPORT INFORMATION
  Report Type: Spontaneous
  Country: CH (occurrence: CH)
  Receive Date: 20230405
  Receipt Date: 20230405
  Transmission Date: 20230722
  Serious: Yes (Death)
  Sender: FDA-Public Use
  Company Number: CH-SM-2023-11432

PATIENT
  Age: 76 Year
  Sex: Female
  Weight: 109.6 kg

DRUGS (3)
  1. ALTEPLASE [Suspect]
     Active Substance: ALTEPLASE
     Indication: Product used for unknown indication
     Dosage: 40 MG OVER 24 HOURS AS LOCAL PERIPHERAL ARTERIAL LYSIS. DOSING REGIMEN: BOLUS 10 MG I.A. FOLLOWED..
     Route: 013
     Dates: start: 20230219, end: 20230220
  2. HEPARIN [Suspect]
     Active Substance: HEPARIN SODIUM
     Indication: Product used for unknown indication
     Route: 042
     Dates: start: 20230219, end: 20230220
  3. BISOPROLOL FUMARATE [Concomitant]
     Active Substance: BISOPROLOL FUMARATE
     Indication: Product used for unknown indication
     Route: 048

REACTIONS (3)
  - Drug interaction [Fatal]
  - Haemorrhage intracranial [Fatal]
  - Off label use [Fatal]

NARRATIVE: CASE EVENT DATE: 20230219
